FAERS Safety Report 9729020 (Version 1)
Quarter: 2013Q4

REPORT INFORMATION
  Report Type: Spontaneous
  Country: DE (occurrence: DE)
  Receive Date: 20131204
  Receipt Date: 20131204
  Transmission Date: 20140711
  Serious: Yes (Life-Threatening, Hospitalization, Congenital Anomaly, Other)
  Sender: FDA-Public Use
  Company Number: DE-WATSON-2013-21974

PATIENT
  Age: 1 Day
  Sex: Male
  Weight: 3 kg

DRUGS (9)
  1. EPIRUBICIN (UNKNOWN) [Suspect]
     Indication: BREAST CANCER
     Dosage: 156 MG TWICE DURING PREGNANCY
     Route: 064
     Dates: start: 20120914, end: 20121005
  2. CYCLOPHOSPHAMIDE (UNKNOWN) [Suspect]
     Indication: BREAST CANCER
     Dosage: 1040 MG, TWICE DURING PREGNANCY
     Route: 064
     Dates: start: 20120914, end: 20121005
  3. LAMOTRIGINE (UNKNOWN) [Suspect]
     Indication: EPILEPSY
     Dosage: 150 MG, BID
     Route: 064
     Dates: end: 20131029
  4. LAMOTRIGINE (UNKNOWN) [Suspect]
     Dosage: 300 MG, DAILY
     Route: 064
     Dates: start: 20120211
  5. LAMOTRIGINE (UNKNOWN) [Suspect]
     Dosage: 50 MG, BID
     Route: 064
  6. FOLIC ACID [Concomitant]
     Indication: PROPHYLAXIS OF NEURAL TUBE DEFECT
     Dosage: 5 MG/D, UNK
     Route: 064
     Dates: start: 20120211, end: 20121029
  7. FILGRASTIM [Concomitant]
     Indication: CHEMOTHERAPY
     Dosage: UNK, TWICE DURING PREGNANCY
     Route: 064
     Dates: start: 20120915, end: 20121006
  8. DEXAMETHASONE [Concomitant]
     Indication: PROPHYLAXIS OF NAUSEA AND VOMITING
     Dosage: UNK, TWICE DURING PREGNANCY
     Route: 064
     Dates: start: 20120914, end: 20121005
  9. ONDANSETRON [Concomitant]
     Indication: PROPHYLAXIS OF NAUSEA AND VOMITING
     Dosage: UNK, TWICE DURING PREGNANCY
     Route: 064
     Dates: start: 20120914, end: 20121005

REACTIONS (5)
  - Hypospadias [Not Recovered/Not Resolved]
  - Pulmonary artery stenosis congenital [Unknown]
  - Atrial septal defect [Not Recovered/Not Resolved]
  - Neonatal respiratory distress syndrome [Recovered/Resolved]
  - Foetal exposure during pregnancy [Not Recovered/Not Resolved]
